FAERS Safety Report 15378130 (Version 1)
Quarter: 2018Q3

REPORT INFORMATION
  Report Type: Spontaneous
  Country: US (occurrence: US)
  Receive Date: 20180906
  Receipt Date: 20180906
  Transmission Date: 20181010
  Serious: No
  Sender: FDA-Public Use
  Company Number: None

PATIENT
  Age: 70 Year
  Sex: Female
  Weight: 85.28 kg

DRUGS (3)
  1. FORTEO [Suspect]
     Active Substance: TERIPARATIDE
     Indication: OSTEOPOROSIS
     Dosage: INJECT 20MCG SUBCUTANEOUSLY EVERY DAY AS DIRECTED
     Route: 058
     Dates: start: 201807
  2. FORTEO [Suspect]
     Active Substance: TERIPARATIDE
     Indication: RHEUMATOID ARTHRITIS
     Dosage: INJECT 20MCG SUBCUTANEOUSLY EVERY DAY AS DIRECTED
     Route: 058
     Dates: start: 201807
  3. FORTEO [Suspect]
     Active Substance: TERIPARATIDE
     Indication: OSTEOARTHRITIS
     Dosage: INJECT 20MCG SUBCUTANEOUSLY EVERY DAY AS DIRECTED
     Route: 058
     Dates: start: 201807

REACTIONS (1)
  - Rib fracture [None]
